FAERS Safety Report 10559217 (Version 2)
Quarter: 2015Q1

REPORT INFORMATION
  Report Type: Spontaneous
  Country: FR (occurrence: FR)
  Receive Date: 20141103
  Receipt Date: 20150113
  Transmission Date: 20150720
  Serious: Yes (Other)
  Sender: FDA-Public Use
  Company Number: FR-AMGEN-FRASP2014084142

PATIENT
  Age: 79 Year
  Sex: Male

DRUGS (21)
  1. VECTIBIX [Suspect]
     Active Substance: PANITUMUMAB
     Indication: COLON CANCER
     Dosage: 515 MG, 1 IN 1 SINGLE DOSE, CYCLICAL
     Route: 042
     Dates: start: 20140731, end: 20140731
  2. MAGNESIUM SULFATE. [Suspect]
     Active Substance: MAGNESIUM SULFATE
     Indication: PRODUCT USED FOR UNKNOWN INDICATION
     Dosage: 1 G, 1 IN 1 SINGLE DOSE, CYCLICAL
     Route: 042
     Dates: start: 20140731, end: 20140731
  3. OXALIPLATINE [Concomitant]
     Active Substance: OXALIPLATIN
     Dosage: 120 MG, UNK
     Route: 065
     Dates: start: 20140828
  4. 5-FU                               /00098801/ [Concomitant]
     Active Substance: FLUOROURACIL
     Indication: METASTASES TO LIVER
     Dosage: 5270 MG, UNK
     Route: 065
     Dates: start: 20140814
  5. CALCIUM FOLINATE [Concomitant]
     Active Substance: LEUCOVORIN CALCIUM
     Dosage: 760 MG, UNK
     Route: 065
     Dates: start: 20140828
  6. MAGNESIUM SULFATE. [Suspect]
     Active Substance: MAGNESIUM SULFATE
     Dosage: 1 G, UNK
     Route: 065
     Dates: start: 20140814
  7. CALCIUM FOLINATE [Concomitant]
     Active Substance: LEUCOVORIN CALCIUM
     Dosage: 760 MG, UNK
     Route: 065
     Dates: start: 20140814
  8. VECTIBIX [Suspect]
     Active Substance: PANITUMUMAB
     Indication: METASTASES TO LIVER
  9. ZOPHREN                            /00955302/ [Concomitant]
     Active Substance: ONDANSETRON
     Indication: PRODUCT USED FOR UNKNOWN INDICATION
     Dosage: 8 MG, 1 IN 1 SINGLE DOSE (8MG/4ML)CYCLICAL
     Route: 042
     Dates: start: 20140731, end: 20140731
  10. ZOPHREN                            /00955302/ [Concomitant]
     Active Substance: ONDANSETRON
     Dosage: 8 MG, UNK
     Route: 065
     Dates: start: 20140814
  11. 5-FU                               /00098801/ [Concomitant]
     Active Substance: FLUOROURACIL
     Indication: COLON CANCER
     Dosage: 5260 MG, 1 IN 1 SINGLE DOSE
     Route: 042
     Dates: start: 20140731, end: 20140731
  12. 5-FU                               /00098801/ [Concomitant]
     Active Substance: FLUOROURACIL
     Dosage: 4770 MG, UNK
     Route: 065
     Dates: start: 20140828
  13. SOLU-MEDROL [Suspect]
     Active Substance: METHYLPREDNISOLONE SODIUM SUCCINATE
     Indication: PRODUCT USED FOR UNKNOWN INDICATION
     Dosage: 1 DF, 1 IN 1 SINGLE DOSE, CYCLICAL
     Route: 042
     Dates: start: 20140731, end: 20140731
  14. CALCIUM GLUCONATE. [Suspect]
     Active Substance: CALCIUM GLUCONATE
     Dosage: 1 G, UNK
     Route: 065
     Dates: start: 20140828
  15. ZOPHREN                            /00955302/ [Concomitant]
     Active Substance: ONDANSETRON
     Dosage: 8 MG, UNK
     Route: 065
     Dates: start: 20140828
  16. OXALIPLATINE [Concomitant]
     Active Substance: OXALIPLATIN
     Indication: COLON CANCER
     Dosage: 120 MG, 1 IN 1 SINGLE DOSE, CYCLICAL
     Route: 042
     Dates: start: 20140731, end: 20140731
  17. OXALIPLATINE [Concomitant]
     Active Substance: OXALIPLATIN
     Indication: METASTASES TO LIVER
     Dosage: 120 MG, UNK
     Route: 065
     Dates: start: 20140814
  18. MAGNESIUM SULFATE. [Suspect]
     Active Substance: MAGNESIUM SULFATE
     Dosage: 1 G, UNK
     Route: 065
     Dates: start: 20140828
  19. CALCIUM FOLINATE [Concomitant]
     Active Substance: LEUCOVORIN CALCIUM
     Indication: PRODUCT USED FOR UNKNOWN INDICATION
     Dosage: 760 MG, 1 IN 1 SINGLE DOSE, CYCLICAL
     Route: 042
     Dates: start: 20140731, end: 20140731
  20. CALCIUM GLUCONATE. [Suspect]
     Active Substance: CALCIUM GLUCONATE
     Indication: PRODUCT USED FOR UNKNOWN INDICATION
     Dosage: 1 G, 1 IN 1 SINGLE DOSE, CYCLICAL
     Route: 042
     Dates: start: 20140731, end: 20140731
  21. CALCIUM GLUCONATE. [Suspect]
     Active Substance: CALCIUM GLUCONATE
     Dosage: 1 G, UNK
     Route: 065
     Dates: start: 20140814

REACTIONS (4)
  - Oedema [Recovered/Resolved]
  - Mucosal inflammation [Recovered/Resolved]
  - Rash pustular [Recovered/Resolved]
  - Erythema [Recovered/Resolved]

NARRATIVE: CASE EVENT DATE: 201408
